FAERS Safety Report 7626985-8 (Version None)
Quarter: 2011Q3

REPORT INFORMATION
  Report Type: 
  Country: None (occurrence: None)
  Receive Date: 20110721
  Receipt Date: 20110718
  Transmission Date: 20111222
  Serious: Yes (Hospitalization, Other)
  Sender: FDA-Public Use
  Company Number: AR-BRISTOL-MYERS SQUIBB COMPANY-14947949

PATIENT
  Age: 44 Year
  Sex: Male

DRUGS (3)
  1. BELATACEPT [Suspect]
     Indication: RENAL TRANSPLANT
     Dosage: STARTED ON 6AUG08 WITH 330MG
     Route: 042
     Dates: start: 20080506
  2. MYCOPHENOLATE MOFETIL [Suspect]
     Dates: start: 20070915
  3. PREDNISONE [Suspect]
     Dates: start: 20070915

REACTIONS (3)
  - PYREXIA [None]
  - OBSTRUCTIVE UROPATHY [None]
  - URINARY TRACT INFECTION [None]
